FAERS Safety Report 7575719-4 (Version None)
Quarter: 2011Q2

REPORT INFORMATION
  Report Type: 
  Country: None (occurrence: None)
  Receive Date: 20110628
  Receipt Date: 20110620
  Transmission Date: 20111010
  Serious: No
  Sender: FDA-Public Use
  Company Number: US-BIOGENIDEC-2011BI005854

PATIENT
  Sex: Female

DRUGS (2)
  1. TYSABRI [Suspect]
     Indication: MULTIPLE SCLEROSIS
     Route: 042
     Dates: start: 20070416
  2. TYSABRI [Suspect]
     Route: 042

REACTIONS (8)
  - ASTHMA [None]
  - FAECAL INCONTINENCE [None]
  - FATIGUE [None]
  - ANAEMIA [None]
  - BRONCHITIS [None]
  - UNDERDOSE [None]
  - HEART RATE INCREASED [None]
  - URINARY INCONTINENCE [None]
